FAERS Safety Report 4965824-0 (Version None)
Quarter: 2006Q2

REPORT INFORMATION
  Report Type: 
  Country: None (occurrence: None)
  Receive Date: 20060406
  Receipt Date: 20060406
  Transmission Date: 20061013
  Serious: Yes (Hospitalization)
  Sender: FDA-Public Use
  Company Number: None

PATIENT
  Age: 56 Year
  Sex: Male

DRUGS (10)
  1. CETUXIMAB 453 MG IV [Suspect]
     Indication: RECTAL CANCER METASTATIC
     Dosage: SEE ABOVE
     Route: 042
     Dates: start: 20060316
  2. BEVACIZUMAB 495 MG IV [Suspect]
     Route: 042
  3. XELODA [Suspect]
     Route: 048
  4. OXALIPLATIN 235 MG IV [Suspect]
     Route: 042
  5. LOVENOX [Concomitant]
  6. FLONASE [Concomitant]
  7. CLARITIN [Concomitant]
  8. TUMS [Concomitant]
  9. VIAGRA [Concomitant]
  10. ZOFRAN [Concomitant]

REACTIONS (4)
  - DIARRHOEA [None]
  - DRUG EFFECT DECREASED [None]
  - FAECAL VOLUME INCREASED [None]
  - WEIGHT DECREASED [None]
